FAERS Safety Report 9634300 (Version 1)
Quarter: 2013Q4

REPORT INFORMATION
  Report Type: Spontaneous
  Country: US (occurrence: US)
  Receive Date: 20131021
  Receipt Date: 20131021
  Transmission Date: 20140711
  Serious: Yes (Hospitalization, Other)
  Sender: FDA-Public Use
  Company Number: US-JNJFOC-20131009067

PATIENT
  Age: 61 Year
  Sex: Female

DRUGS (4)
  1. DOXORUBICIN [Suspect]
     Indication: BREAST CANCER
     Dosage: 4 CYCLES
     Route: 042
  2. CYCLOPHOSPHAMIDE [Suspect]
     Indication: BREAST CANCER
     Dosage: 4 CYCLES
     Route: 065
  3. DOCETAXEL [Suspect]
     Indication: BREAST CANCER
     Dosage: ON DAY 1 OF CYCLE 1
     Route: 065
  4. PEGFILGRASTIM [Suspect]
     Indication: BREAST CANCER
     Dosage: ON DAY 2
     Route: 065

REACTIONS (9)
  - Skin toxicity [Recovering/Resolving]
  - Palmar-plantar erythrodysaesthesia syndrome [Unknown]
  - Hypersensitivity [Unknown]
  - Hypoaesthesia [Unknown]
  - Blister [Unknown]
  - Diarrhoea [Unknown]
  - Mucosal inflammation [Unknown]
  - Paraesthesia [Unknown]
  - Periorbital oedema [Unknown]
